FAERS Safety Report 15335867 (Version 1)
Quarter: 2018Q3

REPORT INFORMATION
  Report Type: Spontaneous
  Country: FR (occurrence: FR)
  Receive Date: 20180830
  Receipt Date: 20180830
  Transmission Date: 20181010
  Serious: Yes (Other)
  Sender: FDA-Public Use
  Company Number: FR-TAKEDA-2018TUS026048

PATIENT
  Age: 67 Year
  Sex: Male

DRUGS (2)
  1. ADENURIC [Suspect]
     Active Substance: FEBUXOSTAT
     Indication: HYPERURICAEMIA
     Dosage: 80 MG, UNK
     Route: 048
     Dates: start: 20170502, end: 20171011
  2. COLCHIMAX                          /01722001/ [Suspect]
     Active Substance: COLCHICINE\OPIUM\TIEMONIUM METHYLSULFATE
     Indication: HYPERURICAEMIA
     Dosage: 1 MG, UNK
     Route: 048
     Dates: start: 20170502, end: 20171011

REACTIONS (4)
  - Amyotrophy [Recovered/Resolved]
  - Myalgia [Recovered/Resolved]
  - Restless legs syndrome [Recovered/Resolved]
  - Blood creatine phosphokinase increased [Recovered/Resolved]

NARRATIVE: CASE EVENT DATE: 2017
